FAERS Safety Report 21448051 (Version 1)
Quarter: 2022Q4

REPORT INFORMATION
  Report Type: Report from Study
  Country: US (occurrence: US)
  Receive Date: 20221012
  Receipt Date: 20221012
  Transmission Date: 20230113
  Serious: Yes (Other)
  Sender: FDA-Public Use
  Company Number: US-BRISTOL-MYERS SQUIBB COMPANY-2022-115658

PATIENT
  Age: 63 Year
  Sex: Female
  Weight: 49.89 kg

DRUGS (1)
  1. REVLIMID [Suspect]
     Active Substance: LENALIDOMIDE
     Indication: Plasma cell myeloma
     Route: 048

REACTIONS (6)
  - Diarrhoea [Unknown]
  - Arthralgia [Unknown]
  - Swelling [Unknown]
  - Muscle spasms [Unknown]
  - Fatigue [Unknown]
  - Off label use [Unknown]
